FAERS Safety Report 7474972-5 (Version None)
Quarter: 2011Q2

REPORT INFORMATION
  Report Type: 
  Country: None (occurrence: None)
  Receive Date: 20110505
  Receipt Date: 20110427
  Transmission Date: 20111010
  Serious: Yes (Other)
  Sender: FDA-Public Use
  Company Number: 904658

PATIENT
  Age: 70 Year
  Sex: Female

DRUGS (2)
  1. PACLITAXEL [Suspect]
     Indication: METASTASES TO BREAST
     Dosage: WEEKLY; WEEKLY
  2. (ZOLEDRONIC ACID) [Concomitant]

REACTIONS (6)
  - MUSCLE ATROPHY [None]
  - LYMPHOEDEMA [None]
  - METASTASES TO SPINE [None]
  - NERVE COMPRESSION [None]
  - METASTASES TO BONE [None]
  - MUSCULAR WEAKNESS [None]
